FAERS Safety Report 23774389 (Version 1)
Quarter: 2024Q2

REPORT INFORMATION
  Report Type: Spontaneous
  Country: AU (occurrence: AU)
  Receive Date: 20240423
  Receipt Date: 20240423
  Transmission Date: 20240716
  Serious: Yes (Life-Threatening, Hospitalization, Other)
  Sender: FDA-Public Use
  Company Number: AU-BAXTER-2023BAX029028

PATIENT
  Age: 82 Year
  Sex: Female
  Weight: 64 kg

DRUGS (26)
  1. CYCLOPHOSPHAMIDE [Suspect]
     Active Substance: CYCLOPHOSPHAMIDE
     Indication: B-cell lymphoma
     Dosage: 300 MG/M2
     Route: 042
     Dates: start: 20210915, end: 20210915
  2. CYCLOPHOSPHAMIDE [Suspect]
     Active Substance: CYCLOPHOSPHAMIDE
     Dosage: 500 MG/M2
     Route: 042
     Dates: start: 20210916, end: 20210916
  3. CYCLOPHOSPHAMIDE [Suspect]
     Active Substance: CYCLOPHOSPHAMIDE
     Dosage: 300 MG/M2
     Route: 042
     Dates: start: 20210917, end: 20210917
  4. FLUDARABINE [Suspect]
     Active Substance: FLUDARABINE PHOSPHATE
     Indication: B-cell lymphoma
     Dosage: 20 MG/M2
     Route: 042
     Dates: start: 20210915, end: 20210915
  5. FLUDARABINE [Suspect]
     Active Substance: FLUDARABINE PHOSPHATE
     Dosage: 20 MG/M2
     Route: 042
     Dates: start: 20210916, end: 20210916
  6. FLUDARABINE [Suspect]
     Active Substance: FLUDARABINE PHOSPHATE
     Dosage: 33.4 MG/M2
     Route: 042
     Dates: start: 20210917, end: 20210917
  7. PREDNISOLONE [Suspect]
     Active Substance: PREDNISOLONE
     Indication: B-cell lymphoma
     Dosage: 50 MG
     Route: 048
     Dates: start: 20210908, end: 20210908
  8. PREDNISOLONE [Suspect]
     Active Substance: PREDNISOLONE
     Dosage: 25 MG
     Route: 048
     Dates: start: 20210909, end: 20210912
  9. PREDNISOLONE [Suspect]
     Active Substance: PREDNISOLONE
     Dosage: 25 MG
     Route: 048
     Dates: start: 20210916, end: 20210917
  10. APIXABAN [Concomitant]
     Active Substance: APIXABAN
     Indication: Pulmonary embolism
     Dosage: UNK
     Route: 048
     Dates: start: 20200715
  11. SIMBRINZA [Concomitant]
     Active Substance: BRIMONIDINE TARTRATE\BRINZOLAMIDE
     Indication: Glaucoma
     Dosage: UNK, (START DATE: 1990)
     Route: 031
  12. DENOSUMAB [Concomitant]
     Active Substance: DENOSUMAB
     Indication: Osteopenia
     Dosage: 1 ML (START DATE: 2019)
     Route: 058
  13. ENTECAVIR [Concomitant]
     Active Substance: ENTECAVIR
     Indication: Hepatitis B
     Dosage: UNK
     Route: 048
     Dates: start: 20210414
  14. PANTOPRAZOLE [Concomitant]
     Active Substance: PANTOPRAZOLE
     Indication: Gastrooesophageal reflux prophylaxis
     Dosage: UNK
     Route: 048
     Dates: start: 20200515
  15. VALACYCLOVIR HYDROCHLORIDE [Concomitant]
     Active Substance: VALACYCLOVIR HYDROCHLORIDE
     Indication: Antiviral prophylaxis
     Dosage: UNK, (START DATE: APR-2020)
     Route: 048
  16. SULFAMETHOXAZOLE\TRIMETHOPRIM [Concomitant]
     Active Substance: SULFAMETHOXAZOLE\TRIMETHOPRIM
     Indication: Antifungal prophylaxis
     Dosage: UNK
     Route: 048
     Dates: start: 20210909
  17. ALLOPURINOL [Concomitant]
     Active Substance: ALLOPURINOL
     Indication: Prophylaxis
     Dosage: UNK
     Route: 048
     Dates: start: 20210909
  18. ONDANSETRON [Concomitant]
     Active Substance: ONDANSETRON
     Indication: Nausea
     Dosage: UNK
     Route: 048
     Dates: start: 20210915
  19. METOCLOPRAMIDE [Concomitant]
     Active Substance: METOCLOPRAMIDE
     Indication: Nausea
     Dosage: UNK, (START DATE: 2021)
     Route: 048
  20. CEFTRIAXONE [Concomitant]
     Active Substance: CEFTRIAXONE\CEFTRIAXONE SODIUM
     Indication: Infection prophylaxis
     Dosage: UNK
     Route: 042
     Dates: start: 20210917, end: 20210917
  21. CEFTRIAXONE [Concomitant]
     Active Substance: CEFTRIAXONE\CEFTRIAXONE SODIUM
     Indication: Prophylaxis
  22. BISACODYL [Concomitant]
     Active Substance: BISACODYL
     Indication: Gastrointestinal tract mucosal pigmentation
     Dosage: UNK, (START DATE: 1960)
     Route: 048
  23. TIMOLOL MALEATE\TRAVOPROST [Concomitant]
     Active Substance: TIMOLOL MALEATE\TRAVOPROST
     Indication: Glaucoma
     Dosage: UNK, (START DATE: 1990)
     Route: 031
  24. BUTYLSCOPOLAMINE BROMIDE [Concomitant]
     Active Substance: BUTYLSCOPOLAMINE BROMIDE
     Indication: B-cell lymphoma
     Dosage: UNK, (START DATE:2021)
     Route: 048
  25. CHOLECALCIFEROL [Concomitant]
     Active Substance: CHOLECALCIFEROL
     Indication: Osteoporosis
     Dosage: 25 MCG (START DATE: 2019)
     Route: 048
  26. POTASSIUM CHLORIDE [Concomitant]
     Active Substance: POTASSIUM CHLORIDE
     Indication: Hypokalaemia
     Dosage: UNK
     Route: 042
     Dates: start: 20210920, end: 20210922

REACTIONS (5)
  - Blood disorder [Recovered/Resolved]
  - Lymphatic disorder [Recovered/Resolved]
  - Condition aggravated [Recovered/Resolved]
  - Pyrexia [Recovered/Resolved]
  - Febrile neutropenia [Recovered/Resolved]

NARRATIVE: CASE EVENT DATE: 20210921
